FAERS Safety Report 10027878 (Version 1)
Quarter: 2014Q1

REPORT INFORMATION
  Report Type: Spontaneous
  Country: HK (occurrence: HK)
  Receive Date: 20140321
  Receipt Date: 20140321
  Transmission Date: 20141002
  Serious: Yes (Other)
  Sender: FDA-Public Use
  Company Number: HK-ABBVIE-14P-075-1214515-00

PATIENT
  Age: 43 Year
  Sex: Female

DRUGS (1)
  1. ENANTONE [Suspect]
     Indication: ENDOMETRIOSIS
     Route: 050
     Dates: start: 20131011

REACTIONS (1)
  - Endometrial hyperplasia [Not Recovered/Not Resolved]
